FAERS Safety Report 8530280-2 (Version None)
Quarter: 2012Q3

REPORT INFORMATION
  Report Type: 
  Country: None (occurrence: None)
  Receive Date: 20120723
  Receipt Date: 20120716
  Transmission Date: 20120928
  Serious: Yes (Hospitalization, Other)
  Sender: FDA-Public Use
  Company Number: US-JNJFOC-20120409442

PATIENT
  Sex: Female

DRUGS (9)
  1. PREDNISONE [Concomitant]
     Route: 065
  2. REMICADE [Suspect]
     Route: 042
     Dates: start: 20120315
  3. AZATHIOPRINE [Concomitant]
     Route: 065
  4. REMICADE [Suspect]
     Route: 042
     Dates: start: 20120105
  5. REMICADE [Suspect]
     Indication: CROHN'S DISEASE
     Route: 042
     Dates: end: 20120101
  6. AZATHIOPRINE [Concomitant]
     Indication: CROHN'S DISEASE
     Route: 065
  7. REMICADE [Suspect]
     Route: 042
     Dates: start: 20111222
  8. ENTOCORT EC [Concomitant]
     Route: 065
  9. PENTASA [Concomitant]
     Route: 065

REACTIONS (3)
  - HYPOTHYROIDISM [None]
  - RENAL FAILURE [None]
  - DEHYDRATION [None]
